FAERS Safety Report 18361997 (Version 1)
Quarter: 2020Q4

REPORT INFORMATION
  Report Type: Report from Study
  Country: ES (occurrence: ES)
  Receive Date: 20201008
  Receipt Date: 20201008
  Transmission Date: 20210114
  Serious: Yes (Life-Threatening, Hospitalization)
  Sender: FDA-Public Use
  Company Number: ES-MYLANLABS-2020M1084735

PATIENT
  Age: 55 Year
  Sex: Male
  Weight: 105 kg

DRUGS (1)
  1. ADALIMUMAB [Suspect]
     Active Substance: ADALIMUMAB
     Indication: PSORIASIS
     Dosage: 80 MILLIGRAM, BIWEEKLY, 80 MG CADA 2 SEMANAS
     Route: 058
     Dates: start: 20180924, end: 20200309

REACTIONS (1)
  - Diffuse large B-cell lymphoma stage III [Recovered/Resolved]

NARRATIVE: CASE EVENT DATE: 20200225
